FAERS Safety Report 25112014 (Version 1)
Quarter: 2025Q1

REPORT INFORMATION
  Report Type: Spontaneous
  Country: CA (occurrence: CA)
  Receive Date: 20250324
  Receipt Date: 20250324
  Transmission Date: 20250409
  Serious: Yes (Other)
  Sender: MYLAN
  Company Number: CA-MYLANLABS-2025M1024175

PATIENT
  Age: 33 Year
  Sex: Female

DRUGS (8)
  1. NITROGLYCERIN [Suspect]
     Active Substance: NITROGLYCERIN
     Indication: Raynaud^s phenomenon
  2. NITROGLYCERIN [Suspect]
     Active Substance: NITROGLYCERIN
     Route: 065
  3. NITROGLYCERIN [Suspect]
     Active Substance: NITROGLYCERIN
     Route: 065
  4. NITROGLYCERIN [Suspect]
     Active Substance: NITROGLYCERIN
  5. ESTROGENS [Concomitant]
     Active Substance: ESTROGENS
     Indication: Oestrogen deficiency
  6. ESTROGENS [Concomitant]
     Active Substance: ESTROGENS
     Route: 065
  7. ESTROGENS [Concomitant]
     Active Substance: ESTROGENS
     Route: 065
  8. ESTROGENS [Concomitant]
     Active Substance: ESTROGENS

REACTIONS (2)
  - Therapy non-responder [Unknown]
  - Off label use [Unknown]
